FAERS Safety Report 5317448-3 (Version None)
Quarter: 2007Q2

REPORT INFORMATION
  Report Type: 
  Country: None (occurrence: None)
  Receive Date: 20070503
  Receipt Date: 20070503
  Transmission Date: 20071010
  Serious: Yes (Death, Life-Threatening, Hospitalization)
  Sender: FDA-Public Use
  Company Number: None

PATIENT
  Age: 33 Year
  Sex: Female
  Weight: 49.8957 kg

DRUGS (2)
  1. ERBITUX [Suspect]
     Indication: BREAST CANCER METASTATIC
     Dosage: IV WEEKLY
     Dates: start: 20070125, end: 20070412
  2. CARBOPLATIN [Suspect]
     Indication: BREAST CANCER METASTATIC
     Dosage: IV WEEKLY
     Dates: start: 20070222, end: 20070405

REACTIONS (2)
  - DISEASE PROGRESSION [None]
  - DYSPNOEA [None]
